FAERS Safety Report 6945782-X (Version None)
Quarter: 2010Q3

REPORT INFORMATION
  Report Type: 
  Country: None (occurrence: None)
  Receive Date: 20100827
  Receipt Date: 20100819
  Transmission Date: 20110219
  Serious: Yes (Hospitalization)
  Sender: FDA-Public Use
  Company Number: B0670483A

PATIENT
  Sex: Male

DRUGS (11)
  1. ZELITREX [Suspect]
     Indication: PRODUCT USED FOR UNKNOWN INDICATION
     Dosage: 1TAB PER DAY
     Route: 048
     Dates: start: 20100510, end: 20100607
  2. VIDAZA [Suspect]
     Indication: CHEMOTHERAPY
     Route: 058
     Dates: start: 20100111, end: 20100607
  3. BACTRIM [Suspect]
     Indication: PRODUCT USED FOR UNKNOWN INDICATION
     Route: 048
     Dates: start: 20100510, end: 20100607
  4. AVODART [Concomitant]
     Indication: PRODUCT USED FOR UNKNOWN INDICATION
     Dosage: .5MG PER DAY
     Route: 065
  5. ZOPHREN [Concomitant]
     Indication: PRODUCT USED FOR UNKNOWN INDICATION
     Dosage: 8MG CYCLIC
     Route: 065
     Dates: start: 20100111
  6. NEORECORMON [Concomitant]
     Indication: PRODUCT USED FOR UNKNOWN INDICATION
     Route: 065
     Dates: start: 20080801, end: 20100607
  7. EXJADE [Concomitant]
     Indication: PRODUCT USED FOR UNKNOWN INDICATION
     Route: 065
     Dates: start: 20091101, end: 20100607
  8. SPECIAFOLDINE [Concomitant]
     Indication: PRODUCT USED FOR UNKNOWN INDICATION
     Dosage: 5MG TWICE PER DAY
     Route: 065
     Dates: start: 20100510
  9. INIPOMP [Concomitant]
     Indication: PRODUCT USED FOR UNKNOWN INDICATION
     Route: 065
     Dates: start: 20100510
  10. ANTI-HYPERURICEMIA MEDICATION [Concomitant]
     Route: 065
     Dates: start: 20100301
  11. CRESTOR [Concomitant]
     Dosage: 5MG PER DAY
     Route: 065
     Dates: start: 20080601

REACTIONS (2)
  - RENAL FAILURE ACUTE [None]
  - RENAL TUBULAR DISORDER [None]
